FAERS Safety Report 8892384 (Version 2)
Quarter: 2013Q1

REPORT INFORMATION
  Report Type: Report from Study
  Country: US (occurrence: US)
  Receive Date: 20121107
  Receipt Date: 20130218
  Transmission Date: 20140127
  Serious: Yes (Death, Life-Threatening, Hospitalization, Other)
  Sender: FDA-Public Use
  Company Number: US-GLAXOSMITHKLINE-A1000153A

PATIENT
  Age: 50 Year
  Sex: Female
  Weight: 53.6 kg

DRUGS (16)
  1. WELLBUTRIN [Suspect]
     Indication: BIPOLAR DISORDER
     Dosage: 300MG PER DAY
     Route: 048
     Dates: start: 20120327
  2. ZYPREXA [Suspect]
     Indication: BIPOLAR DISORDER
     Route: 048
     Dates: start: 20120327
  3. TOPAMAX [Suspect]
     Indication: BIPOLAR DISORDER
     Dosage: 50MG PER DAY
     Route: 048
     Dates: start: 20120329
  4. CLONAZEPAM [Suspect]
     Indication: BIPOLAR DISORDER
     Dosage: .5MG PER DAY
     Route: 048
     Dates: start: 20120327
  5. PERCOCET [Suspect]
     Indication: BIPOLAR DISORDER
     Dates: start: 20120327
  6. OXYCONTIN [Suspect]
     Indication: PAIN
     Dosage: 10MG FOUR TIMES PER DAY
     Route: 048
     Dates: start: 20120810
  7. PRAZOSIN [Suspect]
     Indication: HYPERTENSION
     Dosage: 1MG PER DAY
     Route: 048
     Dates: start: 20120810
  8. MORPHINE SULFATE [Suspect]
     Indication: PAIN
     Dosage: 30MG TWICE PER DAY
     Route: 048
     Dates: start: 20120327
  9. OXYCODONE [Suspect]
     Indication: PAIN
     Dosage: 60MG THREE TIMES PER DAY
     Route: 048
     Dates: start: 20120810
  10. CYMBALTA [Suspect]
     Indication: BIPOLAR DISORDER
     Dosage: 120MG PER DAY
     Route: 048
     Dates: start: 20120327
  11. UNKNOWN MEDICATION [Suspect]
     Indication: NON-SMALL CELL LUNG CANCER
     Dosage: 45MG PER DAY
     Route: 048
     Dates: start: 20120726, end: 20120922
  12. FOLIC ACID [Concomitant]
  13. CALCIUM CITRATE [Concomitant]
  14. BLINDED TRIAL MEDICATION [Concomitant]
     Indication: NON-SMALL CELL LUNG CANCER
     Dates: start: 20120726, end: 20120822
  15. IRON [Concomitant]
  16. B12 [Concomitant]

REACTIONS (7)
  - Gastrointestinal haemorrhage [Fatal]
  - Hypovolaemic shock [Fatal]
  - Cardio-respiratory arrest [Unknown]
  - Small intestinal obstruction [Unknown]
  - Hypoxia [Unknown]
  - Haematemesis [Unknown]
  - Hypotension [Unknown]
